FAERS Safety Report 16613913 (Version 2)
Quarter: 2019Q3

REPORT INFORMATION
  Report Type: Report from Study
  Country: US (occurrence: US)
  Receive Date: 20190723
  Receipt Date: 20190823
  Transmission Date: 20191004
  Serious: Yes (Other)
  Sender: FDA-Public Use
  Company Number: US-ASTELLAS-2019US025042

PATIENT
  Age: 80 Year
  Sex: Male

DRUGS (3)
  1. ISAVUCONAZOLE [Suspect]
     Active Substance: ISAVUCONAZOLE
     Indication: SINUSITIS FUNGAL
  2. ISAVUCONAZOLE [Suspect]
     Active Substance: ISAVUCONAZOLE
     Indication: CHRONIC SINUSITIS
     Route: 048
     Dates: start: 20190613
  3. ISAVUCONAZOLE [Suspect]
     Active Substance: ISAVUCONAZOLE
     Indication: ASPERGILLUS INFECTION

REACTIONS (5)
  - Decreased appetite [Unknown]
  - Anxiety [Unknown]
  - Product use in unapproved indication [Unknown]
  - Dementia [Unknown]
  - Hallucination [Not Recovered/Not Resolved]

NARRATIVE: CASE EVENT DATE: 20190613
